FAERS Safety Report 6230250-3 (Version None)
Quarter: 2009Q2

REPORT INFORMATION
  Report Type: 
  Country: None (occurrence: None)
  Receive Date: 20090615
  Receipt Date: 20090611
  Transmission Date: 20091009
  Serious: Yes (Death, Hospitalization)
  Sender: FDA-Public Use
  Company Number: GR-ABBOTT-09P-066-0574006-00

PATIENT
  Age: 84 Year
  Sex: Male
  Weight: 47 kg

DRUGS (5)
  1. ZEMPLAR [Suspect]
     Indication: HYPERPARATHYROIDISM SECONDARY
     Route: 042
     Dates: start: 20070606, end: 20090605
  2. PLAVIX [Concomitant]
     Indication: ANTIPLATELET THERAPY
     Route: 048
     Dates: start: 20061001, end: 20090605
  3. ARANESP [Concomitant]
     Indication: ANAEMIA
     Route: 042
     Dates: start: 20080301, end: 20090605
  4. FOSRENOL [Concomitant]
     Indication: HYPERPHOSPHATAEMIA
     Route: 048
     Dates: start: 20070601, end: 20090605
  5. NEUROBION [Concomitant]
     Indication: HYPOVITAMINOSIS
     Dosage: 1/2 PER WEEK
     Route: 042
     Dates: start: 20061001, end: 20090605

REACTIONS (3)
  - ACUTE PULMONARY OEDEMA [None]
  - CARDIAC FAILURE [None]
  - MYOCARDIAL INFARCTION [None]
